FAERS Safety Report 25691502 (Version 1)
Quarter: 2025Q3

REPORT INFORMATION
  Report Type: Spontaneous
  Country: RU (occurrence: RU)
  Receive Date: 20250818
  Receipt Date: 20250818
  Transmission Date: 20251021
  Serious: Yes (Other)
  Sender: DR REDDYS
  Company Number: RU-RZN-RUS/2025/08/012313

PATIENT
  Age: 55 Year
  Sex: Female

DRUGS (1)
  1. OMEPRAZOLE [Suspect]
     Active Substance: OMEPRAZOLE
     Indication: Cholelithiasis
     Route: 048

REACTIONS (3)
  - Oesophageal mucosal tear [Recovering/Resolving]
  - Stevens-Johnson syndrome [Recovering/Resolving]
  - Arthralgia [Recovering/Resolving]
